FAERS Safety Report 7413562-7 (Version None)
Quarter: 2011Q2

REPORT INFORMATION
  Report Type: 
  Country: None (occurrence: None)
  Receive Date: 20110413
  Receipt Date: 20110130
  Transmission Date: 20111010
  Serious: No
  Sender: FDA-Public Use
  Company Number: US-B.I. PHARMACEUTICALS,INC./RIDGEFIELD-2011-BP-02923BP

PATIENT
  Sex: Male

DRUGS (1)
  1. PRADAXA [Suspect]
     Dates: start: 20101201

REACTIONS (5)
  - FEELING COLD [None]
  - FAECES DISCOLOURED [None]
  - NAUSEA [None]
  - ASTHENIA [None]
  - FEELING HOT [None]
